FAERS Safety Report 11617306 (Version 4)
Quarter: 2016Q3

REPORT INFORMATION
  Report Type: Report from Study
  Country: US (occurrence: US)
  Receive Date: 20151009
  Receipt Date: 20160913
  Transmission Date: 20161109
  Serious: Yes (Hospitalization)
  Sender: FDA-Public Use
  Company Number: US-JNJFOC-20151005589

PATIENT
  Age: 72 Year
  Sex: Female

DRUGS (17)
  1. CAMELLIA SINENSIS [Concomitant]
     Active Substance: GREEN TEA LEAF
  2. ROBAXIN [Concomitant]
     Active Substance: METHOCARBAMOL
  3. HYDROCODONE [Concomitant]
     Active Substance: HYDROCODONE
  4. BYSTOLIC [Concomitant]
     Active Substance: NEBIVOLOL HYDROCHLORIDE
  5. COLACE [Concomitant]
     Active Substance: DOCUSATE SODIUM
  6. IMBRUVICA [Suspect]
     Active Substance: IBRUTINIB
     Indication: NON-HODGKIN^S LYMPHOMA
     Route: 048
     Dates: start: 20150109
  7. DILTIAZEM. [Suspect]
     Active Substance: DILTIAZEM
     Indication: PRODUCT USED FOR UNKNOWN INDICATION
     Dates: start: 20150904, end: 20150927
  8. VITAMIN D3 [Concomitant]
     Active Substance: CHOLECALCIFEROL
  9. BENADRYL [Concomitant]
     Active Substance: DIPHENHYDRAMINE HYDROCHLORIDE
  10. LYRICA [Concomitant]
     Active Substance: PREGABALIN
  11. TELMISARTAN. [Concomitant]
     Active Substance: TELMISARTAN
     Indication: BLOOD PRESSURE ABNORMAL
     Dates: start: 2014
  12. MAGNESIUM [Concomitant]
     Active Substance: MAGNESIUM
  13. OMEGA 3 [Concomitant]
     Active Substance: OMEGA-3 FATTY ACIDS
  14. PROTONIX [Concomitant]
     Active Substance: PANTOPRAZOLE SODIUM
  15. IMBRUVICA [Suspect]
     Active Substance: IBRUTINIB
     Indication: CHRONIC LYMPHOCYTIC LEUKAEMIA
     Route: 048
     Dates: start: 20150109
  16. PROBIOTIC [Concomitant]
     Active Substance: PROBIOTICS NOS
  17. COENZYME Q10 [Concomitant]
     Active Substance: UBIDECARENONE

REACTIONS (9)
  - Asthenia [Recovered/Resolved]
  - Pruritus [Unknown]
  - Blood pressure increased [Recovered/Resolved]
  - Fatigue [Recovered/Resolved]
  - Back pain [Unknown]
  - Blood sodium decreased [Recovered/Resolved]
  - Paraesthesia [Recovered/Resolved]
  - Weight increased [Unknown]
  - Hypoaesthesia [Recovered/Resolved]

NARRATIVE: CASE EVENT DATE: 2015
